FAERS Safety Report 9416072 (Version 1)
Quarter: 2013Q3

REPORT INFORMATION
  Report Type: Spontaneous
  Country: US (occurrence: None)
  Receive Date: 20130723
  Receipt Date: 20130723
  Transmission Date: 20140515
  Serious: No
  Sender: FDA-Public Use
  Company Number: None

PATIENT
  Sex: Female
  Weight: 68.49 kg

DRUGS (1)
  1. ORTHO TRI-CYCLEN (GENERIC) [Suspect]
     Dosage: 1 DOSE PO QDAY
     Route: 048
     Dates: start: 201104, end: 201201

REACTIONS (5)
  - Anger [None]
  - Depression [None]
  - Hormone level abnormal [None]
  - Therapeutic response unexpected with drug substitution [None]
  - Product substitution issue [None]
